FAERS Safety Report 7591684-8 (Version None)
Quarter: 2011Q2

REPORT INFORMATION
  Report Type: 
  Country: None (occurrence: None)
  Receive Date: 20110627
  Receipt Date: 20110616
  Transmission Date: 20111010
  Serious: Yes (Hospitalization, Other)
  Sender: FDA-Public Use
  Company Number: GB-ACCORD-009509

PATIENT
  Age: 61 Year
  Sex: Male

DRUGS (4)
  1. CLOPIDOGREL [Suspect]
     Indication: PRODUCT USED FOR UNKNOWN INDICATION
  2. OMEPRAZOLE [Suspect]
     Indication: PRODUCT USED FOR UNKNOWN INDICATION
  3. SIMVASTATIN [Suspect]
     Indication: PRODUCT USED FOR UNKNOWN INDICATION
  4. PENICILLIN V (PENICILLIN V) [Concomitant]

REACTIONS (23)
  - BODY TEMPERATURE INCREASED [None]
  - COORDINATION ABNORMAL [None]
  - ALANINE AMINOTRANSFERASE INCREASED [None]
  - HEPATITIS ACUTE [None]
  - LIVER FUNCTION TEST ABNORMAL [None]
  - TRANSIENT ISCHAEMIC ATTACK [None]
  - JAUNDICE [None]
  - HEADACHE [None]
  - MONOCYTOSIS [None]
  - PARIETAL CELL ANTIBODY POSITIVE [None]
  - WEIGHT DECREASED [None]
  - RESTLESSNESS [None]
  - CHROMATURIA [None]
  - LIVEDO RETICULARIS [None]
  - HEPATOTOXICITY [None]
  - EPIGASTRIC DISCOMFORT [None]
  - VOMITING [None]
  - FAECES PALE [None]
  - RASH PRURITIC [None]
  - GAMMA-GLUTAMYLTRANSFERASE DECREASED [None]
  - DECREASED APPETITE [None]
  - SLEEP DISORDER [None]
  - BLOOD ALKALINE PHOSPHATASE INCREASED [None]
